FAERS Safety Report 9492115 (Version 4)
Quarter: 2016Q1

REPORT INFORMATION
  Report Type: Report from Study
  Country: US (occurrence: US)
  Receive Date: 20130830
  Receipt Date: 20160226
  Transmission Date: 20160526
  Serious: Yes (Hospitalization, Other)
  Sender: FDA-Public Use
  Company Number: US-ASTRAZENECA-2013SE65343

PATIENT
  Age: 84 Year
  Sex: Female
  Weight: 63.5 kg

DRUGS (29)
  1. NEXIUM [Suspect]
     Active Substance: ESOMEPRAZOLE MAGNESIUM
     Indication: BARRETT^S OESOPHAGUS
     Route: 048
     Dates: start: 2004
  2. PRILOSEC OTC [Suspect]
     Active Substance: OMEPRAZOLE MAGNESIUM
     Indication: GASTROOESOPHAGEAL REFLUX DISEASE
     Route: 048
     Dates: start: 20131218
  3. PRILOSEC OTC [Suspect]
     Active Substance: OMEPRAZOLE MAGNESIUM
     Indication: FLATULENCE
     Route: 048
  4. MULTIVITAMINS [Concomitant]
     Active Substance: VITAMINS
     Dosage: DAILY
  5. FLONASE [Concomitant]
     Active Substance: FLUTICASONE PROPIONATE
  6. NEXIUM [Suspect]
     Active Substance: ESOMEPRAZOLE MAGNESIUM
     Indication: GASTROOESOPHAGEAL REFLUX DISEASE
     Route: 048
     Dates: start: 201307, end: 201307
  7. NEXIUM [Suspect]
     Active Substance: ESOMEPRAZOLE MAGNESIUM
     Indication: GASTROOESOPHAGEAL REFLUX DISEASE
     Route: 048
     Dates: start: 201307
  8. NEXIUM [Suspect]
     Active Substance: ESOMEPRAZOLE MAGNESIUM
     Indication: BARRETT^S OESOPHAGUS
     Route: 048
     Dates: start: 201307
  9. PRILOSEC OTC [Suspect]
     Active Substance: OMEPRAZOLE MAGNESIUM
     Indication: FLATULENCE
     Route: 048
     Dates: start: 20131218
  10. PRILOSEC [Suspect]
     Active Substance: OMEPRAZOLE MAGNESIUM
     Indication: FLATULENCE
     Route: 048
  11. FISH OIL [Concomitant]
     Active Substance: FISH OIL
  12. CALCIUM [Concomitant]
     Active Substance: CALCIUM
  13. TYLENOL [Concomitant]
     Active Substance: ACETAMINOPHEN
     Dosage: PRN
  14. GABAPENTIN. [Concomitant]
     Active Substance: GABAPENTIN
     Indication: PAIN
     Dates: start: 2013
  15. NEXIUM [Suspect]
     Active Substance: ESOMEPRAZOLE MAGNESIUM
     Indication: GASTROOESOPHAGEAL REFLUX DISEASE
     Route: 048
     Dates: start: 2004
  16. ARICEPT [Concomitant]
     Active Substance: DONEPEZIL HYDROCHLORIDE
     Indication: DEMENTIA
     Route: 048
  17. NEXIUM [Suspect]
     Active Substance: ESOMEPRAZOLE MAGNESIUM
     Indication: GASTROOESOPHAGEAL REFLUX DISEASE
     Route: 048
     Dates: end: 201307
  18. NEXIUM [Suspect]
     Active Substance: ESOMEPRAZOLE MAGNESIUM
     Indication: BARRETT^S OESOPHAGUS
     Route: 048
     Dates: end: 201307
  19. CLONAZEPAM. [Concomitant]
     Active Substance: CLONAZEPAM
     Indication: INSOMNIA
     Route: 048
  20. STOOL SOFTENER [Concomitant]
     Active Substance: DOCUSATE CALCIUM
     Dosage: PRN
  21. NASONEX [Concomitant]
     Active Substance: MOMETASONE FUROATE
     Route: 045
  22. NEXIUM [Suspect]
     Active Substance: ESOMEPRAZOLE MAGNESIUM
     Indication: BARRETT^S OESOPHAGUS
     Route: 048
     Dates: start: 201307, end: 201307
  23. NEXIUM [Suspect]
     Active Substance: ESOMEPRAZOLE MAGNESIUM
     Indication: GASTROOESOPHAGEAL REFLUX DISEASE
     Dosage: DAILY
     Route: 048
     Dates: start: 2004
  24. VITAMIN D3 [Concomitant]
     Active Substance: CHOLECALCIFEROL
  25. NEXIUM [Suspect]
     Active Substance: ESOMEPRAZOLE MAGNESIUM
     Indication: BARRETT^S OESOPHAGUS
     Dosage: DAILY
     Route: 048
     Dates: start: 2004
  26. PRILOSEC OTC [Suspect]
     Active Substance: OMEPRAZOLE MAGNESIUM
     Indication: GASTROOESOPHAGEAL REFLUX DISEASE
     Route: 048
  27. VITAMIN B12 [Concomitant]
     Active Substance: CYANOCOBALAMIN
     Indication: ADJUVANT THERAPY
  28. GABAPENTIN. [Concomitant]
     Active Substance: GABAPENTIN
     Indication: TOOTHACHE
     Dates: start: 2013
  29. PROBIOTICS [Concomitant]
     Active Substance: PROBIOTICS NOS
     Indication: ABNORMAL FAECES
     Route: 048

REACTIONS (36)
  - Hydrocephalus [Unknown]
  - Oral pain [Unknown]
  - Musculoskeletal chest pain [Unknown]
  - Back pain [Unknown]
  - Thought blocking [Unknown]
  - Diarrhoea [Unknown]
  - Myalgia [Unknown]
  - Abdominal pain upper [Unknown]
  - Off label use [Unknown]
  - Product use issue [Unknown]
  - Toothache [Unknown]
  - Barrett^s oesophagus [Unknown]
  - Intentional product misuse [Unknown]
  - Spinal fracture [Unknown]
  - Dyspepsia [Unknown]
  - Peripheral nerve lesion [Unknown]
  - Visual impairment [Unknown]
  - Hyperchlorhydria [Unknown]
  - Dementia [Unknown]
  - Eructation [Recovered/Resolved]
  - Hiatus hernia [Not Recovered/Not Resolved]
  - Oesophageal pain [Unknown]
  - Urinary incontinence [Not Recovered/Not Resolved]
  - Eye disorder [Unknown]
  - Drug ineffective [Unknown]
  - Mouth swelling [Unknown]
  - Gastrointestinal pain [Unknown]
  - Oropharyngeal pain [Unknown]
  - Abdominal pain upper [Unknown]
  - Sleep disorder due to a general medical condition [Unknown]
  - Hiatus hernia [Unknown]
  - Flatulence [Recovered/Resolved]
  - Cataract [Unknown]
  - Renal cyst [Not Recovered/Not Resolved]
  - Amnesia [Unknown]
  - Polyp [Unknown]

NARRATIVE: CASE EVENT DATE: 2004
